FAERS Safety Report 24131578 (Version 1)
Quarter: 2024Q3

REPORT INFORMATION
  Report Type: Spontaneous
  Country: IT (occurrence: IT)
  Receive Date: 20240724
  Receipt Date: 20240724
  Transmission Date: 20241017
  Serious: Yes (Hospitalization)
  Sender: PHARMACOSMOS
  Company Number: IT-NEBO-664033

PATIENT
  Age: 36 Year
  Sex: Female

DRUGS (2)
  1. VENTOLIN [Concomitant]
     Active Substance: ALBUTEROL SULFATE
     Indication: Product used for unknown indication
  2. MONOFERRIC [Suspect]
     Active Substance: FERRIC DERISOMALTOSE
     Indication: Iron deficiency anaemia
     Dates: start: 20240709

REACTIONS (3)
  - Tachycardia [Recovered/Resolved]
  - Paralysis [Recovered/Resolved]
  - Fishbane reaction [Recovered/Resolved]

NARRATIVE: CASE EVENT DATE: 20240709
